FAERS Safety Report 14195412 (Version 3)
Quarter: 2018Q1

REPORT INFORMATION
  Report Type: Spontaneous
  Country: GB (occurrence: GB)
  Receive Date: 20171116
  Receipt Date: 20180302
  Transmission Date: 20180508
  Serious: Yes (Hospitalization, Disabling, Other)
  Sender: FDA-Public Use
  Company Number: GB-ABBVIE-17P-167-2165376-00

PATIENT
  Sex: Female

DRUGS (1)
  1. VALPROATE SODIUM. [Suspect]
     Active Substance: VALPROATE SODIUM
     Indication: MATERNAL EXPOSURE TIMING UNSPECIFIED
     Dosage: EVERY DAY
     Route: 064

REACTIONS (12)
  - Impaired quality of life [Unknown]
  - Speech disorder developmental [Unknown]
  - Urinary incontinence [Unknown]
  - Foetal exposure during pregnancy [Unknown]
  - Premature baby [Unknown]
  - Malaise [Unknown]
  - Foetal anticonvulsant syndrome [Unknown]
  - Speech disorder [Unknown]
  - Autism spectrum disorder [Unknown]
  - Cardiac disorder [Unknown]
  - Dyspnoea [Unknown]
  - Developmental delay [Unknown]
